FAERS Safety Report 20659744 (Version 1)
Quarter: 2022Q1

REPORT INFORMATION
  Report Type: Spontaneous
  Country: PL (occurrence: PL)
  Receive Date: 20220331
  Receipt Date: 20220331
  Transmission Date: 20220423
  Serious: Yes (Other)
  Sender: FDA-Public Use
  Company Number: None

PATIENT
  Age: 83 Year
  Sex: Female

DRUGS (24)
  1. OFIRMEV [Suspect]
     Active Substance: ACETAMINOPHEN
     Indication: Product used for unknown indication
     Dosage: 1 DOSAGE FORM IN 1 DAY (ONCE A DAY)
     Route: 065
  2. METOPROLOL [Suspect]
     Active Substance: METOPROLOL
     Indication: Product used for unknown indication
     Dosage: (1 DOSAGE FORM) IN 1 DAY, DAILY
     Route: 065
  3. POTASSIUM CHLORIDE [Suspect]
     Active Substance: POTASSIUM CHLORIDE
     Indication: Product used for unknown indication
     Dosage: (2 DOSAGE FORM) IN 1 DAY, DAILY; 1 TABLET (391 K PLUS) EVERY 2 DAYS (1 DOSAGE FORMS,1 IN 2 D)
     Route: 065
  4. OMEPRAZOLE [Suspect]
     Active Substance: OMEPRAZOLE
     Indication: Product used for unknown indication
     Dosage: 20 MILLIGRAM, 2X/DAY (EVERY 12 HOURS); ((40 MILLIGRAM(S)) IN 1 DAY)
     Route: 065
  5. ALBUTEROL [Suspect]
     Active Substance: ALBUTEROL
     Indication: Product used for unknown indication
     Dosage: UNK, AS NECESSARY
     Route: 065
  6. LEVOTHYROXINE [Suspect]
     Active Substance: LEVOTHYROXINE
     Indication: Product used for unknown indication
     Dosage: (1 DOSAGE FORM) IN 1 DAY, DAILY
     Route: 065
  7. POTASSIUM CHLORIDE [Suspect]
     Active Substance: POTASSIUM CHLORIDE
     Indication: Product used for unknown indication
     Dosage: UNK
     Route: 065
  8. ATORVASTATIN CALCIUM [Suspect]
     Active Substance: ATORVASTATIN CALCIUM
     Indication: Product used for unknown indication
     Dosage: (1 DOSAGE FORM) IN 1 DAY, DAILY
     Route: 065
  9. HYDROXYZINE HYDROCHLORIDE [Suspect]
     Active Substance: HYDROXYZINE HYDROCHLORIDE
     Indication: Product used for unknown indication
     Dosage: AS NECASSARY, USUALLY 2 X /24 H
     Route: 065
  10. TRAMADOL [Suspect]
     Active Substance: TRAMADOL
     Indication: Product used for unknown indication
     Dosage: AS NECESSARY 2 TABLETS
     Route: 065
  11. RAMIPRIL [Suspect]
     Active Substance: RAMIPRIL
     Indication: Product used for unknown indication
     Dosage: (1 DOSAGE FORM) IN 1 DAY, DAILY
     Route: 065
  12. ZOLPIDEM [Suspect]
     Active Substance: ZOLPIDEM TARTRATE
     Indication: Product used for unknown indication
     Dosage: (1 DOSAGE FORM) IN 1 DAY, DAILY
     Route: 065
  13. GLICLAZIDE [Suspect]
     Active Substance: GLICLAZIDE
     Indication: Product used for unknown indication
     Dosage: (3 DOSAGE FORM) IN 1 DAY; 1 DF, 3X/DAY (EVERY 8 HOURS)
     Route: 065
  14. ALPRAZOLAM [Suspect]
     Active Substance: ALPRAZOLAM
     Indication: Product used for unknown indication
     Dosage: UNK
     Route: 065
  15. CITALOPRAM [Suspect]
     Active Substance: CITALOPRAM HYDROBROMIDE
     Indication: Product used for unknown indication
     Dosage: (1 DOSAGE FORM) IN 1 DAY, DAILY
     Route: 065
  16. HYDROCHLOROTHIAZIDE [Suspect]
     Active Substance: HYDROCHLOROTHIAZIDE
     Indication: Product used for unknown indication
     Dosage: (1 DOSAGE FORM) IN 1 DAY, DAILY
     Route: 065
  17. ISOSORBIDE MONONITRATE [Suspect]
     Active Substance: ISOSORBIDE MONONITRATE
     Indication: Product used for unknown indication
     Dosage: AS NECESSARY, USUALLY 1-2 X / 24 H
     Route: 065
  18. ALLOPURINOL [Suspect]
     Active Substance: ALLOPURINOL
     Indication: Product used for unknown indication
     Dosage: (1 DOSAGE FORM) IN 1 DAY, DAILY
     Route: 065
  19. SPIRONOLACTONE [Suspect]
     Active Substance: SPIRONOLACTONE
     Indication: Product used for unknown indication
     Dosage: (1 DOSAGE FORM) IN 1 DAY, DAILY
     Route: 065
  20. DABIGATRAN [Suspect]
     Active Substance: DABIGATRAN
     Indication: Product used for unknown indication
     Dosage: (2 DOSAGE FORM) IN 1 DAY; 1 DF, 2X/DAY (EVERY 12 HOURS)
     Route: 065
  21. BETAHISTINE [Suspect]
     Active Substance: BETAHISTINE
     Indication: Product used for unknown indication
     Dosage: (1 DOSAGE FORM) IN 1 DAY, DAILY
     Route: 065
  22. NIKETHAMIDE [Suspect]
     Active Substance: NIKETHAMIDE
     Indication: Product used for unknown indication
     Dosage: UNK
     Route: 065
  23. FUROSEMIDE [Suspect]
     Active Substance: FUROSEMIDE
     Indication: Product used for unknown indication
     Dosage: DOSAGE FORM, QOD (3 DOSAGE FORM) (1 DOSAGE FORMS,1 IN 2 D)
     Route: 065
  24. METOCLOPRAMIDE [Suspect]
     Active Substance: METOCLOPRAMIDE
     Indication: Product used for unknown indication
     Dosage: AS NECESSARY 2 TABLETS IN CASE OF CONSTIPATION FOR MANY MONTHS
     Route: 065

REACTIONS (28)
  - Micturition disorder [Unknown]
  - Type 2 diabetes mellitus [Unknown]
  - Gastrointestinal disorder [Unknown]
  - Hyponatraemia [Unknown]
  - Parkinsonism [Unknown]
  - Chronic kidney disease [Unknown]
  - Femur fracture [Unknown]
  - Dementia [Unknown]
  - Atrial fibrillation [Unknown]
  - Autoimmune thyroiditis [Unknown]
  - Osteoporosis [Unknown]
  - Drug dependence [Unknown]
  - Pancreatitis acute [Unknown]
  - Depression [Unknown]
  - Coronary artery disease [Unknown]
  - Cognitive disorder [Unknown]
  - Peptic ulcer [Unknown]
  - Arthralgia [Unknown]
  - Mobility decreased [Unknown]
  - Cardiac failure [Unknown]
  - Fall [Unknown]
  - Diabetes mellitus inadequate control [Unknown]
  - Cholecystectomy [Unknown]
  - Deep vein thrombosis [Unknown]
  - Obesity [Unknown]
  - Hypoglycaemia [Unknown]
  - Hypotension [Unknown]
  - Hypertension [Unknown]
